FAERS Safety Report 9473646 (Version 1)
Quarter: 2013Q3

REPORT INFORMATION
  Report Type: Spontaneous
  Country: US (occurrence: US)
  Receive Date: 20130823
  Receipt Date: 20130823
  Transmission Date: 20140515
  Serious: No
  Sender: FDA-Public Use
  Company Number: US-BRISTOL-MYERS SQUIBB COMPANY-16814030

PATIENT
  Age: 75 Year
  Sex: Female

DRUGS (13)
  1. SPRYCEL [Suspect]
     Dates: end: 20120629
  2. AMBIEN [Concomitant]
  3. ZOCOR [Concomitant]
  4. NORVASC [Concomitant]
  5. LISINOPRIL [Concomitant]
  6. ASPIRIN [Concomitant]
  7. VITAMIN D [Concomitant]
  8. GLUCOSAMINE [Concomitant]
  9. COMPAZINE [Concomitant]
  10. ACYCLOVIR [Concomitant]
  11. LEVAQUIN [Concomitant]
  12. DIFLUCAN [Concomitant]
  13. LASIX [Concomitant]

REACTIONS (1)
  - Diarrhoea [Not Recovered/Not Resolved]
